FAERS Safety Report 6248409-8 (Version None)
Quarter: 2009Q2

REPORT INFORMATION
  Report Type: 
  Country: None (occurrence: None)
  Receive Date: 20090629
  Receipt Date: 20090624
  Transmission Date: 20091009
  Serious: Yes (Life-Threatening, Hospitalization, Other)
  Sender: FDA-Public Use
  Company Number: PHEH2009US06670

PATIENT
  Age: 88 Year
  Sex: Female
  Weight: 58.503 kg

DRUGS (7)
  1. RECLAST [Suspect]
     Dosage: 5 MG, UNK
     Route: 042
     Dates: start: 20090610
  2. AVAPRO [Concomitant]
  3. HYDROCHLOROTHIAZIDE [Concomitant]
  4. DIGOXIN [Concomitant]
  5. LEVOTHYROXINE SODIUM [Concomitant]
  6. TRICOR [Concomitant]
  7. TOPROL-XL [Concomitant]

REACTIONS (6)
  - BEDRIDDEN [None]
  - BLOOD PHOSPHORUS DECREASED [None]
  - CONVULSION [None]
  - INCONTINENCE [None]
  - LACTIC ACIDOSIS [None]
  - VOMITING [None]
